FAERS Safety Report 23888953 (Version 1)
Quarter: 2024Q2

REPORT INFORMATION
  Report Type: Report from Study
  Country: DE (occurrence: DE)
  Receive Date: 20240523
  Receipt Date: 20240523
  Transmission Date: 20240716
  Serious: Yes (Other)
  Sender: FDA-Public Use
  Company Number: DE-002147023-NVSC2024DE108042

PATIENT
  Sex: Female
  Weight: 55 kg

DRUGS (6)
  1. KISQALI [Suspect]
     Active Substance: RIBOCICLIB
     Indication: Breast cancer
     Dosage: 600 MG( SCHEME 21 DAYS INTAKE, 7 DAYS PAUSE)
     Route: 048
     Dates: start: 20190909, end: 20200127
  2. KISQALI [Suspect]
     Active Substance: RIBOCICLIB
     Dosage: 400 MG( SCHEME 21 DAYS INTAKE, 7 DAYS PAUSE)
     Route: 048
     Dates: start: 20200128, end: 20220404
  3. KISQALI [Suspect]
     Active Substance: RIBOCICLIB
     Dosage: 400 MG( SCHEME 21 DAYS INTAKE, 7 DAYS PAUSE)
     Route: 048
     Dates: start: 20220418, end: 20221118
  4. KISQALI [Suspect]
     Active Substance: RIBOCICLIB
     Dosage: 400 MG( SCHEME 21 DAYS INTAKE, 7 DAYS PAUSE)
     Route: 048
     Dates: start: 20221205, end: 20240208
  5. KISQALI [Suspect]
     Active Substance: RIBOCICLIB
     Dosage: 400 MG( SCHEME 21 DAYS INTAKE, 7 DAYS PAUSE)
     Route: 048
     Dates: start: 20240410
  6. LETROZOLE [Suspect]
     Active Substance: LETROZOLE
     Indication: Breast cancer
     Dosage: 2.5 MG, QD
     Route: 048
     Dates: start: 20190909

REACTIONS (4)
  - Cholestasis [Recovered/Resolved]
  - Sleep disorder [Recovered/Resolved]
  - Flatulence [Recovered/Resolved]
  - Liver function test increased [Recovered/Resolved]

NARRATIVE: CASE EVENT DATE: 20231122
